FAERS Safety Report 5730303-X (Version None)
Quarter: 2008Q2

REPORT INFORMATION
  Report Type: 
  Country: None (occurrence: None)
  Receive Date: 20080506
  Receipt Date: 20080506
  Transmission Date: 20081010
  Serious: Yes (Other)
  Sender: FDA-Public Use
  Company Number: None

PATIENT
  Sex: Male
  Weight: 104.3273 kg

DRUGS (1)
  1. CREST PRO-HEALTH .07% CETYLPRIDINIUM PROCTER + GAMBLE [Suspect]
     Indication: ROUTINE HEALTH MAINTENANCE
     Dosage: APPROX 20ML 1 AT NIGHT RINSE PO
     Route: 048
     Dates: start: 20080419, end: 20080504

REACTIONS (2)
  - PHARMACEUTICAL PRODUCT COMPLAINT [None]
  - TOOTH DISCOLOURATION [None]
